FAERS Safety Report 24880743 (Version 1)
Quarter: 2025Q1

REPORT INFORMATION
  Report Type: Spontaneous
  Country: JP (occurrence: JP)
  Receive Date: 20250123
  Receipt Date: 20250123
  Transmission Date: 20250409
  Serious: Yes (Other)
  Sender: STRIDES
  Company Number: None

PATIENT
  Age: 47 Year
  Sex: Male

DRUGS (8)
  1. AMLODIPINE [Interacting]
     Active Substance: AMLODIPINE BESYLATE
     Indication: Hypertension
     Route: 065
  2. FLUCONAZOLE [Interacting]
     Active Substance: FLUCONAZOLE
     Indication: Oral candidiasis
     Route: 048
  3. FLUCONAZOLE [Interacting]
     Active Substance: FLUCONAZOLE
     Indication: Pneumonia cryptococcal
     Route: 048
  4. FLUCONAZOLE [Interacting]
     Active Substance: FLUCONAZOLE
     Route: 048
  5. BICTEGRAVIR [Interacting]
     Active Substance: BICTEGRAVIR
     Indication: HIV infection
     Route: 065
  6. IRBESARTAN [Interacting]
     Active Substance: IRBESARTAN
     Indication: Hypertension
     Route: 065
  7. EMTRICITABINE [Concomitant]
     Active Substance: EMTRICITABINE
     Indication: HIV infection
     Route: 065
  8. TENOFOVIR ALAFENAMIDE [Concomitant]
     Active Substance: TENOFOVIR ALAFENAMIDE
     Indication: HIV infection
     Route: 065

REACTIONS (2)
  - Drug interaction [Recovered/Resolved]
  - Ventricular extrasystoles [Recovered/Resolved]
